FAERS Safety Report 5281775-9 (Version None)
Quarter: 2007Q1

REPORT INFORMATION
  Report Type: 
  Country: None (occurrence: None)
  Receive Date: 20070330
  Receipt Date: 20070329
  Transmission Date: 20070707
  Serious: Yes (Other)
  Sender: FDA-Public Use
  Company Number: JP-GLAXOSMITHKLINE-B0464090A

PATIENT
  Age: 35 Year
  Sex: Female

DRUGS (4)
  1. PAXIL [Suspect]
     Indication: DEPRESSION
     Route: 048
     Dates: start: 20060922, end: 20061213
  2. ESTAZOLAM [Concomitant]
     Route: 048
  3. FLUNITRAZEPAM [Concomitant]
     Route: 048
  4. TRYPTANOL [Concomitant]
     Route: 048

REACTIONS (1)
  - SELF INJURIOUS BEHAVIOUR [None]
